FAERS Safety Report 18868821 (Version 1)
Quarter: 2021Q1

REPORT INFORMATION
  Report Type: Other
  Country: US (occurrence: US)
  Receive Date: 20210209
  Receipt Date: 20210209
  Transmission Date: 20210420
  Serious: Yes (Hospitalization, Other)
  Sender: FDA-Public Use
  Company Number: US-ROCHE-2765260

PATIENT
  Age: 43 Year
  Sex: Female

DRUGS (1)
  1. RITUXIMAB. [Suspect]
     Active Substance: RITUXIMAB
     Indication: SYSTEMIC LUPUS ERYTHEMATOSUS
     Route: 065

REACTIONS (5)
  - Gastroenteritis [Unknown]
  - Colitis [Unknown]
  - Hypogammaglobulinaemia [Unknown]
  - B-lymphocyte count decreased [Unknown]
  - Neutropenia [Unknown]
